FAERS Safety Report 5936298-8 (Version None)
Quarter: 2008Q4

REPORT INFORMATION
  Report Type: 
  Country: None (occurrence: None)
  Receive Date: 20081030
  Receipt Date: 20081023
  Transmission Date: 20090506
  Serious: Yes (Congenital Anomaly)
  Sender: FDA-Public Use
  Company Number: GB-AVENTIS-200814529EU

PATIENT
  Sex: Female

DRUGS (3)
  1. CLEXANE [Suspect]
     Indication: ANTIPHOSPHOLIPID SYNDROME
     Route: 064
     Dates: start: 20080114, end: 20081003
  2. ASPIRIN [Concomitant]
     Indication: ANTIPHOSPHOLIPID SYNDROME
     Route: 064
     Dates: start: 20080114
  3. PROGESTERONE [Concomitant]
     Indication: ANTIPHOSPHOLIPID SYNDROME
     Route: 064
     Dates: start: 20080114

REACTIONS (2)
  - DRUG EXPOSURE DURING PREGNANCY [None]
  - HIP DYSPLASIA [None]
